FAERS Safety Report 9006041 (Version 2)
Quarter: 2013Q1

REPORT INFORMATION
  Report Type: Spontaneous
  Country: US (occurrence: US)
  Receive Date: 20130109
  Receipt Date: 20130125
  Transmission Date: 20140127
  Serious: Yes (Other)
  Sender: FDA-Public Use
  Company Number: PHHY2013US001947

PATIENT
  Age: 77 Year
  Sex: Male

DRUGS (1)
  1. BUFFERIN REGULAR STRENGTH [Suspect]
     Indication: PAIN
     Dosage: 2 DF, UNK
     Route: 048

REACTIONS (7)
  - Neck injury [Recovered/Resolved]
  - Intervertebral disc disorder [Unknown]
  - Inflammation [Unknown]
  - Nerve compression [Unknown]
  - Hypoaesthesia [Recovered/Resolved]
  - Incorrect drug administration duration [Unknown]
  - Wrong technique in drug usage process [Unknown]
